FAERS Safety Report 10149028 (Version 2)
Quarter: 2014Q2

REPORT INFORMATION
  Report Type: Spontaneous
  Country: ES (occurrence: ES)
  Receive Date: 20140502
  Receipt Date: 20140513
  Transmission Date: 20141212
  Serious: Yes (Death, Hospitalization, Other)
  Sender: FDA-Public Use
  Company Number: ES-AMGEN-ESPSP2014030654

PATIENT
  Age: 71 Year
  Sex: Female

DRUGS (7)
  1. MIMPARA [Suspect]
     Indication: PRODUCT USED FOR UNKNOWN INDICATION
     Dosage: 60 MG, UNK
     Route: 065
     Dates: start: 201207
  2. METFORMIN [Concomitant]
  3. VILDAGLIPTIN [Concomitant]
  4. CANDESARTAN [Concomitant]
     Dosage: 32 MG, UNK
  5. ADIRO [Concomitant]
  6. MINITRANS [Concomitant]
  7. CALCIFEDIOL [Concomitant]

REACTIONS (11)
  - Generalised oedema [Fatal]
  - General physical health deterioration [Fatal]
  - Renal failure acute [Fatal]
  - Hypotension [Fatal]
  - Pulmonary oedema [Fatal]
  - Muscular weakness [Unknown]
  - Hypercalcaemia [Unknown]
  - Disease complication [Unknown]
  - Paraneoplastic syndrome [Unknown]
  - Urinary tract infection [Unknown]
  - Calculus urinary [Unknown]
